FAERS Safety Report 23857713 (Version 1)
Quarter: 2024Q2

REPORT INFORMATION
  Report Type: Spontaneous
  Country: US (occurrence: US)
  Receive Date: 20240515
  Receipt Date: 20240515
  Transmission Date: 20240715
  Serious: No
  Sender: FDA-Public Use
  Company Number: US-Kiniksa Pharmaceuticals Ltd.-2023KPU000973

PATIENT
  Age: 66 Year
  Sex: Female

DRUGS (15)
  1. ARCALYST [Suspect]
     Active Substance: RILONACEPT
     Indication: Pericarditis
     Route: 058
     Dates: start: 20231001
  2. COLCHICINE [Concomitant]
     Active Substance: COLCHICINE
  3. NITROGLYCERIN [Concomitant]
     Active Substance: NITROGLYCERIN
  4. PLAVIX [Concomitant]
     Active Substance: CLOPIDOGREL BISULFATE
  5. BUMETANIDE [Concomitant]
     Active Substance: BUMETANIDE
  6. ASPIRIN [Concomitant]
     Active Substance: ASPIRIN
  7. ALEVE [Concomitant]
     Active Substance: NAPROXEN SODIUM
  8. CLARITIN [Concomitant]
     Active Substance: LORATADINE
  9. SINGULAIR [Concomitant]
     Active Substance: MONTELUKAST SODIUM
  10. TRELEGY ELLIPTA [Concomitant]
     Active Substance: FLUTICASONE FUROATE\UMECLIDINIUM BROMIDE\VILANTEROL TRIFENATATE
  11. ALBUTEROL [Concomitant]
     Active Substance: ALBUTEROL
  12. VALSARTAN [Concomitant]
     Active Substance: VALSARTAN
  13. ZETIA [Concomitant]
     Active Substance: EZETIMIBE
  14. REPATHA [Concomitant]
     Active Substance: EVOLOCUMAB
  15. ASPIRIN [Concomitant]
     Active Substance: ASPIRIN
     Indication: Product used for unknown indication

REACTIONS (11)
  - Urinary tract infection [Not Recovered/Not Resolved]
  - Cellulitis [Recovered/Resolved]
  - Arthralgia [Unknown]
  - Chest pain [Unknown]
  - Dyspnoea [Unknown]
  - Chest discomfort [Unknown]
  - Dyspnoea [Not Recovered/Not Resolved]
  - Dizziness [Recovered/Resolved]
  - Fatigue [Not Recovered/Not Resolved]
  - Malaise [Not Recovered/Not Resolved]
  - Chest pain [Unknown]

NARRATIVE: CASE EVENT DATE: 20231003
